FAERS Safety Report 19280596 (Version 4)
Quarter: 2022Q1

REPORT INFORMATION
  Report Type: Report from Study
  Country: IT (occurrence: IT)
  Receive Date: 20210520
  Receipt Date: 20220201
  Transmission Date: 20220423
  Serious: Yes (Death, Hospitalization, Other)
  Sender: FDA-Public Use
  Company Number: IT-NOVARTISPH-NVSC2021IT110092

PATIENT
  Age: 47 Year
  Sex: Male
  Weight: 71 kg

DRUGS (4)
  1. RYDAPT [Suspect]
     Active Substance: MIDOSTAURIN
     Indication: Systemic mastocytosis
     Dosage: 50 MG, BID
     Route: 048
     Dates: start: 20210204, end: 20210508
  2. RYDAPT [Suspect]
     Active Substance: MIDOSTAURIN
     Indication: Myelofibrosis
     Dosage: 25 MG, BID
     Route: 048
     Dates: start: 20211020, end: 20211102
  3. RUXOLITINIB [Suspect]
     Active Substance: RUXOLITINIB
     Indication: Systemic mastocytosis
     Dosage: 5 MG, BID
     Route: 048
     Dates: start: 20210422, end: 20210508
  4. RUXOLITINIB [Suspect]
     Active Substance: RUXOLITINIB
     Indication: Myelofibrosis

REACTIONS (11)
  - Acute myeloid leukaemia [Fatal]
  - Hypoxia [Recovered/Resolved]
  - Pericardial effusion [Recovered/Resolved]
  - Acute kidney injury [Recovered/Resolved]
  - Pneumonia [Recovered/Resolved]
  - Abdominal pain [Recovered/Resolved]
  - Tachycardia [Recovered/Resolved]
  - General physical health deterioration [Recovered/Resolved]
  - Pleural effusion [Recovered/Resolved]
  - Dyspnoea [Recovered/Resolved]
  - Renal failure [Recovered/Resolved with Sequelae]

NARRATIVE: CASE EVENT DATE: 20210508
